FAERS Safety Report 9631530 (Version 4)
Quarter: 2013Q4

REPORT INFORMATION
  Report Type: Spontaneous
  Country: US (occurrence: US)
  Receive Date: 20131018
  Receipt Date: 20131127
  Transmission Date: 20140711
  Serious: No
  Sender: FDA-Public Use
  Company Number: US-PFIZER INC-2013295239

PATIENT
  Age: 62 Year
  Sex: Female

DRUGS (1)
  1. FLECTOR [Suspect]
     Indication: TENOSYNOVITIS STENOSANS
     Dosage: 1.3% BID
     Route: 061
     Dates: start: 20131010, end: 20131014

REACTIONS (5)
  - Swelling [Unknown]
  - Inflammation [Recovered/Resolved]
  - Erythema [Recovered/Resolved]
  - Pain [Unknown]
  - Hypersensitivity [Unknown]
